FAERS Safety Report 4526732-2 (Version None)
Quarter: 2004Q4

REPORT INFORMATION
  Report Type: 
  Country: None (occurrence: None)
  Receive Date: 20041213
  Receipt Date: 20041130
  Transmission Date: 20050328
  Serious: Yes (Death, Life-Threatening, Hospitalization, Other)
  Sender: FDA-Public Use
  Company Number: HQWYE365206APR04

PATIENT
  Age: 52 Year
  Sex: Male
  Weight: 69.01 kg

DRUGS (9)
  1. RAPAMUNE [Suspect]
     Indication: PROPHYLAXIS AGAINST TRANSPLANT REJECTION
     Dosage: SEE IMAGE
     Dates: start: 20040304, end: 20040422
  2. RAPAMUNE [Suspect]
     Indication: PROPHYLAXIS AGAINST TRANSPLANT REJECTION
     Dosage: SEE IMAGE
     Dates: start: 20040101
  3. LORTAB [Concomitant]
  4. MULTIVIT (VITAMINS NOS) [Concomitant]
  5. GLIPIZIDE [Concomitant]
  6. HYDROCORTISONE [Concomitant]
  7. FOSAMAX [Concomitant]
  8. TRIAMCINOLONE ^LECIVA^ (TRIAMCINOLONE ACETONIDE) [Concomitant]
  9. ALTACE (RAMIPRIL) [Concomitant]

REACTIONS (17)
  - AXILLARY MASS [None]
  - BACTERIAL INFECTION [None]
  - BIOPSY LIVER ABNORMAL [None]
  - BIOPSY LYMPH GLAND ABNORMAL [None]
  - BLOOD LACTATE DEHYDROGENASE INCREASED [None]
  - CELLULITIS [None]
  - GYNAECOMASTIA [None]
  - LYMPHADENOPATHY [None]
  - NECROSIS [None]
  - PORTAL VEIN THROMBOSIS [None]
  - POSTOPERATIVE INFECTION [None]
  - SKIN CANCER METASTATIC [None]
  - SMALL CELL CARCINOMA [None]
  - SPLENOMEGALY [None]
  - STAPHYLOCOCCAL ABSCESS [None]
  - SUBCUTANEOUS ABSCESS [None]
  - WOUND INFECTION STAPHYLOCOCCAL [None]
